FAERS Safety Report 8229626-4 (Version None)
Quarter: 2012Q1

REPORT INFORMATION
  Report Type: 
  Country: None (occurrence: None)
  Receive Date: 20120322
  Receipt Date: 20120313
  Transmission Date: 20120608
  Serious: Yes (Other)
  Sender: FDA-Public Use
  Company Number: PHHY2011BR35124

PATIENT
  Age: 33 Year
  Sex: Female

DRUGS (5)
  1. DIOVAN [Suspect]
     Indication: HYPERTENSION
     Dosage: 1 TABLET A DAY (80MG)
  2. BUDESONIDE [Concomitant]
     Dosage: 1 INHALATION OR 2 INHALATIONS A DAY WHEN NECCESORY
     Dates: start: 20110401
  3. ALDOMET [Concomitant]
     Dosage: 4 TABLETS A DAY
  4. ALDOMET [Concomitant]
     Indication: HYPERTENSION
     Dosage: 3 TABLETS A DAY
     Dates: start: 20110401
  5. ALDOMET [Concomitant]
     Dosage: 1 TABLETS A DAY

REACTIONS (5)
  - ASTHMATIC CRISIS [None]
  - PHARYNGITIS [None]
  - MATERNAL EXPOSURE DURING PREGNANCY [None]
  - NORMAL NEWBORN [None]
  - PYREXIA [None]
